FAERS Safety Report 10869177 (Version 2)
Quarter: 2015Q1

REPORT INFORMATION
  Report Type: Spontaneous
  Country: US (occurrence: US)
  Receive Date: 20150225
  Receipt Date: 20150226
  Transmission Date: 20150721
  Serious: No
  Sender: FDA-Public Use
  Company Number: US-009507513-1502USA003131

PATIENT
  Age: 27 Year
  Sex: Female
  Weight: 74.83 kg

DRUGS (1)
  1. NEXPLANON [Suspect]
     Active Substance: ETONOGESTREL
     Indication: CONTRACEPTION
     Dosage: 1 ROD, EVERY 3 YEARS, IMPLANT ON LEFT ARM
     Route: 059
     Dates: start: 20140804

REACTIONS (10)
  - Device breakage [Not Recovered/Not Resolved]
  - Depression [Unknown]
  - Device kink [Not Recovered/Not Resolved]
  - Dizziness [Unknown]
  - Implant site pruritus [Unknown]
  - Nausea [Unknown]
  - Nipple pain [Unknown]
  - Dizziness [Unknown]
  - Weight increased [Unknown]
  - Implant site irritation [Unknown]

NARRATIVE: CASE EVENT DATE: 2014
